FAERS Safety Report 7742138-7 (Version None)
Quarter: 2011Q3

REPORT INFORMATION
  Report Type: 
  Country: None (occurrence: None)
  Receive Date: 20110912
  Receipt Date: 20110414
  Transmission Date: 20111222
  Serious: No
  Sender: FDA-Public Use
  Company Number: US-BAYER-2011-033507

PATIENT
  Age: 53 Year
  Sex: Female

DRUGS (2)
  1. MIRENA [Suspect]
     Indication: MENORRHAGIA
     Dosage: 20 MCG/24HR, CONT
     Route: 015
     Dates: end: 20110331
  2. COUMADIN [Concomitant]
     Dosage: 12 MG, UNK

REACTIONS (1)
  - INTERNATIONAL NORMALISED RATIO DECREASED [None]
